FAERS Safety Report 7884682 (Version 6)
Quarter: 2013Q1

REPORT INFORMATION
  Report Type: Spontaneous
  Country: US (occurrence: US)
  Receive Date: 20110405
  Receipt Date: 20130114
  Transmission Date: 20140127
  Serious: Yes (Hospitalization)
  Sender: FDA-Public Use
  Company Number: US-BAYER-2011-028330

PATIENT
  Age: 33 Year
  Sex: Female

DRUGS (1)
  1. YASMIN [Suspect]
     Indication: CONTRACEPTION
     Dosage: UNK UNK, QD
     Route: 048
     Dates: start: 200701, end: 200912

REACTIONS (8)
  - Pulmonary embolism [Recovering/Resolving]
  - Deep vein thrombosis [None]
  - Pain [Recovering/Resolving]
  - Injury [None]
  - Anxiety [None]
  - Emotional distress [None]
  - General physical health deterioration [None]
  - Anhedonia [None]
